FAERS Safety Report 6568947-8 (Version None)
Quarter: 2010Q1

REPORT INFORMATION
  Report Type: 
  Country: None (occurrence: None)
  Receive Date: 20100203
  Receipt Date: 20100126
  Transmission Date: 20100710
  Serious: Yes (Life-Threatening)
  Sender: FDA-Public Use
  Company Number: IT-TEVA-222666ISR

PATIENT
  Sex: Female

DRUGS (4)
  1. METHOTREXATE [Suspect]
     Indication: ACUTE LYMPHOCYTIC LEUKAEMIA
     Route: 042
     Dates: start: 20090529, end: 20090612
  2. CYCLOPHOSPHAMIDE [Suspect]
     Indication: ACUTE LYMPHOCYTIC LEUKAEMIA
     Route: 042
     Dates: start: 20090513, end: 20090514
  3. ANTI-THYMOCYTE GLOBULIN NOS [Suspect]
     Indication: ACUTE LYMPHOCYTIC LEUKAEMIA
     Route: 042
     Dates: start: 20090523, end: 20090524
  4. CYCLOSPORINE [Concomitant]
     Route: 048

REACTIONS (6)
  - ESCHERICHIA BACTERAEMIA [None]
  - GASTROINTESTINAL INFLAMMATION [None]
  - NAUSEA [None]
  - PYREXIA [None]
  - STAPHYLOCOCCAL BACTERAEMIA [None]
  - VOMITING [None]
